FAERS Safety Report 4579930-6 (Version None)
Quarter: 2005Q1

REPORT INFORMATION
  Report Type: 
  Country: None (occurrence: None)
  Receive Date: 20050211
  Receipt Date: 20050211
  Transmission Date: 20050727
  Serious: Yes (Life-Threatening)
  Sender: FDA-Public Use
  Company Number: None

PATIENT
  Age: 16 Year
  Sex: Female
  Weight: 90.7194 kg

DRUGS (2)
  1. SEROQUEL [Suspect]
     Indication: PSYCHOTIC DISORDER
     Dosage: 100 MG PO DAILY    SEVERAL DAYS
     Route: 048
  2. CLONIDINE [Suspect]
     Indication: SLEEP DISORDER
     Dosage: 0.1 MG PO DAILY IN PM   SEVERAL DAYS
     Route: 048

REACTIONS (5)
  - BRADYCARDIA [None]
  - DRUG INTERACTION [None]
  - HYPOTENSION [None]
  - PULSE PRESSURE DECREASED [None]
  - SYNCOPE [None]
